FAERS Safety Report 4871711-9 (Version None)
Quarter: 2005Q4

REPORT INFORMATION
  Report Type: 
  Country: None (occurrence: None)
  Receive Date: 20051230
  Receipt Date: 20051221
  Transmission Date: 20060501
  Serious: Yes (Other)
  Sender: FDA-Public Use
  Company Number: HQWYE156727DEC05

PATIENT
  Age: 73 Year
  Sex: Female

DRUGS (6)
  1. RALOXIFENE [Suspect]
     Indication: OSTEOPOROSIS
     Dosage: 60 MG
     Route: 048
     Dates: start: 20030313
  2. BECLOMETHASONE DIPROPIONATE [Concomitant]
  3. DIPYRONE TAB [Concomitant]
  4. ADEIPHENINE (ADIPHENINE) [Concomitant]
  5. PROMETHAZINE [Concomitant]
  6. DICLOFENAC POTASSIUM [Concomitant]

REACTIONS (1)
  - ENDOMETRIAL CANCER [None]
